FAERS Safety Report 8969849 (Version 1)
Quarter: 2012Q4

REPORT INFORMATION
  Report Type: 
  Country: US (occurrence: US)
  Receive Date: 20121218
  Receipt Date: 20121218
  Transmission Date: 20130627
  Serious: No
  Sender: FDA-Public Use
  Company Number: US-BRISTOL-MYERS SQUIBB COMPANY-16541377

PATIENT
  Age: 48 Year
  Sex: Male
  Weight: 102.94 kg

DRUGS (5)
  1. ABILIFY [Suspect]
     Indication: OBSESSIVE THOUGHTS
     Dosage: prescription no:109470148157
  2. ABILIFY [Suspect]
     Indication: BIPOLAR I DISORDER
     Dosage: prescription no:109470148157
  3. GLUCOSAMINE [Concomitant]
     Indication: ARTHRITIS
  4. FISH OIL [Concomitant]
     Indication: ARTHRITIS
  5. IBUPROFEN [Concomitant]

REACTIONS (1)
  - Rash pruritic [Unknown]
